FAERS Safety Report 4477470-6 (Version None)
Quarter: 2004Q4

REPORT INFORMATION
  Report Type: 
  Country: None (occurrence: None)
  Receive Date: 20041013
  Receipt Date: 20040930
  Transmission Date: 20050328
  Serious: Yes (Death)
  Sender: FDA-Public Use
  Company Number: 209365

PATIENT
  Age: 40 Year
  Sex: Female
  Weight: 70 kg

DRUGS (2)
  1. HERCEPTIN [Suspect]
     Indication: BREAST CANCER
     Dosage: 8 MG/KG,SINGLE, INTRAVENOUS; 6 MG/KG,Q3W,INTRAVENOUS
     Route: 042
     Dates: start: 20031112, end: 20031112
  2. HERCEPTIN [Suspect]
     Indication: BREAST CANCER
     Dosage: 8 MG/KG,SINGLE, INTRAVENOUS; 6 MG/KG,Q3W,INTRAVENOUS
     Route: 042
     Dates: start: 20031203, end: 20040811

REACTIONS (7)
  - APNOEA [None]
  - COMA [None]
  - CYANOSIS [None]
  - FALL [None]
  - PULSE ABSENT [None]
  - SUDDEN DEATH [None]
  - TACHYPNOEA [None]
